FAERS Safety Report 9052237 (Version 3)
Quarter: 2013Q1

REPORT INFORMATION
  Report Type: Spontaneous
  Country: GB (occurrence: GB)
  Receive Date: 20130206
  Receipt Date: 20130327
  Transmission Date: 20140127
  Serious: Yes (Other)
  Sender: FDA-Public Use
  Company Number: GB-009507513-1302GBR000573

PATIENT
  Age: 77 Year
  Sex: Female

DRUGS (1)
  1. ZISPIN SOLTAB [Suspect]
     Indication: DEPRESSION
     Dosage: 15 MG, UNK
     Route: 048

REACTIONS (2)
  - Memory impairment [Unknown]
  - Confusional state [Unknown]
